FAERS Safety Report 8197529-X (Version None)
Quarter: 2012Q1

REPORT INFORMATION
  Report Type: 
  Country: None (occurrence: None)
  Receive Date: 20120309
  Receipt Date: 20120228
  Transmission Date: 20120608
  Serious: Yes (Hospitalization)
  Sender: FDA-Public Use
  Company Number: NL-MILLENNIUM PHARMACEUTICALS, INC.-2012-01505

PATIENT

DRUGS (3)
  1. FENTANYL [Concomitant]
     Dosage: 12 UNK, UNK
  2. VELCADE [Suspect]
     Indication: MULTIPLE MYELOMA
  3. DEXAMETHASONE [Concomitant]
     Dosage: 4 MG, UNK

REACTIONS (1)
  - PAIN [None]
